FAERS Safety Report 8207788-2 (Version None)
Quarter: 2012Q1

REPORT INFORMATION
  Report Type: 
  Country: None (occurrence: None)
  Receive Date: 20120227
  Receipt Date: 20111107
  Transmission Date: 20120608
  Serious: No
  Sender: FDA-Public Use
  Company Number: 338898

PATIENT
  Age: 52 Year
  Sex: Female

DRUGS (1)
  1. VICTOZA [Suspect]
     Indication: TYPE 2 DIABETES MELLITUS
     Dosage: 0.6 MG, QD, SUBCUTANEOUS
     Route: 058
     Dates: start: 20111026, end: 20111027

REACTIONS (6)
  - VOMITING [None]
  - MUSCLE SPASMS [None]
  - CONSTIPATION [None]
  - DECREASED APPETITE [None]
  - ABDOMINAL PAIN [None]
  - NAUSEA [None]
